FAERS Safety Report 23397676 (Version 1)
Quarter: 2024Q1

REPORT INFORMATION
  Report Type: Spontaneous
  Country: US (occurrence: US)
  Receive Date: 20240112
  Receipt Date: 20240112
  Transmission Date: 20240409
  Serious: No
  Sender: FDA-Public Use
  Company Number: US-PFIZER INC-202400007851

PATIENT
  Age: 68 Year
  Sex: Female
  Weight: 53.52 kg

DRUGS (1)
  1. ESTRING [Suspect]
     Active Substance: ESTRADIOL
     Indication: Atrophic vulvovaginitis
     Dosage: 2 MG, EVERY 3 MONTHS (EVERY 90 DAYS)
     Route: 067

REACTIONS (1)
  - Therapeutic response unexpected [Unknown]
